FAERS Safety Report 6888251-8 (Version None)
Quarter: 2010Q3

REPORT INFORMATION
  Report Type: 
  Country: None (occurrence: None)
  Receive Date: 20100730
  Receipt Date: 20100722
  Transmission Date: 20110219
  Serious: Yes (Death)
  Sender: FDA-Public Use
  Company Number: GXKR2010US08144

PATIENT
  Age: 64 Year
  Sex: Male

DRUGS (1)
  1. TRIAMCINOLONE (NGX) [Suspect]
     Indication: NECK PAIN
     Dosage: 2 ML, ONCE/SINGLE
     Route: 014

REACTIONS (9)
  - APNOEIC ATTACK [None]
  - BRADYCARDIA [None]
  - CEREBROVASCULAR ACCIDENT [None]
  - COMA [None]
  - ENDOTRACHEAL INTUBATION [None]
  - EXTENSOR PLANTAR RESPONSE [None]
  - HYPERTENSION [None]
  - LOSS OF CONSCIOUSNESS [None]
  - POSTURE ABNORMAL [None]
